FAERS Safety Report 14253857 (Version 2)
Quarter: 2017Q4

REPORT INFORMATION
  Report Type: Spontaneous
  Country: CL (occurrence: CL)
  Receive Date: 20171206
  Receipt Date: 20171213
  Transmission Date: 20180321
  Serious: Yes (Death, Other)
  Sender: FDA-Public Use
  Company Number: CL-009507513-1711CHL012098

PATIENT

DRUGS (1)
  1. NOXAFIL [Suspect]
     Active Substance: POSACONAZOLE
     Dosage: UNK
     Dates: end: 2016

REACTIONS (1)
  - Death [Fatal]

NARRATIVE: CASE EVENT DATE: 2016
